FAERS Safety Report 6978184-0 (Version None)
Quarter: 2010Q3

REPORT INFORMATION
  Report Type: 
  Country: None (occurrence: None)
  Receive Date: 20100913
  Receipt Date: 20100902
  Transmission Date: 20110219
  Serious: Yes (Other)
  Sender: FDA-Public Use
  Company Number: US-ASTRAZENECA-2010SE35062

PATIENT
  Age: 18816 Day
  Sex: Male
  Weight: 79.4 kg

DRUGS (11)
  1. CRESTOR [Suspect]
     Indication: BLOOD CHOLESTEROL INCREASED
     Route: 048
     Dates: start: 20070109
  2. CRESTOR [Suspect]
     Indication: HYPERLIPIDAEMIA
     Route: 048
     Dates: start: 20070109
  3. CRESTOR [Suspect]
     Route: 048
     Dates: start: 20090301, end: 20100501
  4. CRESTOR [Suspect]
     Route: 048
     Dates: start: 20090301, end: 20100501
  5. LEXAPRO [Concomitant]
  6. ZANTAC [Concomitant]
  7. CIALIS [Concomitant]
  8. FLOMAX [Concomitant]
  9. WELLBUTRIN [Concomitant]
  10. HYTRIN [Concomitant]
  11. CLARITIN [Concomitant]

REACTIONS (1)
  - MUSCLE RUPTURE [None]
